FAERS Safety Report 10614613 (Version 1)
Quarter: 2014Q4

REPORT INFORMATION
  Report Type: Spontaneous
  Country: US (occurrence: US)
  Receive Date: 20141130
  Receipt Date: 20141130
  Transmission Date: 20150529
  Serious: Yes (Hospitalization)
  Sender: FDA-Public Use
  Company Number: US-BRISTOL-MYERS SQUIBB COMPANY-21627849

PATIENT
  Age: 76 Year
  Sex: Female
  Weight: 72.56 kg

DRUGS (1)
  1. BYETTA [Suspect]
     Active Substance: EXENATIDE
     Route: 065

REACTIONS (4)
  - Eye disorder [Unknown]
  - Spinal operation [Unknown]
  - Carpal tunnel decompression [Unknown]
  - Weight decreased [Not Recovered/Not Resolved]
